FAERS Safety Report 26124297 (Version 1)
Quarter: 2025Q4

REPORT INFORMATION
  Report Type: Other
  Country: JP (occurrence: JP)
  Receive Date: 20251205
  Receipt Date: 20251205
  Transmission Date: 20260117
  Serious: Yes (Hospitalization, Other)
  Sender: NOVITIUM PHARMA
  Company Number: JP-NOVITIUM PHARMA-000339

PATIENT
  Age: 51 Year
  Sex: Female

DRUGS (4)
  1. ANAGRELIDE HYDROCHLORIDE [Suspect]
     Active Substance: ANAGRELIDE HYDROCHLORIDE
     Indication: Essential thrombocythaemia
  2. BENIDIPINE [Concomitant]
     Active Substance: BENIDIPINE
     Indication: Vasodilatation
  3. DILTIAZEM [Concomitant]
     Active Substance: DILTIAZEM
     Indication: Vasodilatation
  4. NICORANDIL [Concomitant]
     Active Substance: NICORANDIL
     Indication: Vasodilatation

REACTIONS (2)
  - Acute coronary syndrome [Unknown]
  - Prinzmetal angina [Recovering/Resolving]
